FAERS Safety Report 7507908-9 (Version None)
Quarter: 2011Q2

REPORT INFORMATION
  Report Type: 
  Country: None (occurrence: None)
  Receive Date: 20110527
  Receipt Date: 20110513
  Transmission Date: 20111010
  Serious: Yes (Other)
  Sender: FDA-Public Use
  Company Number: FR-RANBAXY-2011RR-42968

PATIENT
  Age: 39 Year
  Sex: Female

DRUGS (3)
  1. HYDROXYCHLOROQUINE SULFATE [Concomitant]
  2. IBUPROFEN [Suspect]
     Indication: ARTHRALGIA
  3. IBUPROFEN [Suspect]

REACTIONS (1)
  - MENINGITIS ASEPTIC [None]
